FAERS Safety Report 22198235 (Version 9)
Quarter: 2024Q2

REPORT INFORMATION
  Report Type: Spontaneous
  Country: US (occurrence: US)
  Receive Date: 20230411
  Receipt Date: 20240620
  Transmission Date: 20240715
  Serious: Yes (Other)
  Sender: FDA-Public Use
  Company Number: US-PFIZER INC-202200355717

PATIENT
  Age: 82 Year
  Sex: Female

DRUGS (8)
  1. XELJANZ [Suspect]
     Active Substance: TOFACITINIB CITRATE
     Indication: Rash
     Dosage: 5 MG
     Dates: start: 202202, end: 20240404
  2. XELJANZ [Suspect]
     Active Substance: TOFACITINIB CITRATE
     Indication: Rheumatoid arthritis
     Dosage: 5MG PO (PER ORAL) BID (TWICE A DAY)
     Route: 048
  3. XELJANZ [Suspect]
     Active Substance: TOFACITINIB CITRATE
     Dosage: 5MG PO (PER ORAL) QD (ONCE A DAY)
     Route: 048
  4. LATANOPROST [Concomitant]
     Active Substance: LATANOPROST
  5. HYDROCHLOROTHIAZIDE [Concomitant]
     Active Substance: HYDROCHLOROTHIAZIDE
  6. LISINOPRIL [Concomitant]
     Active Substance: LISINOPRIL
  7. PRAVASTATIN [Concomitant]
     Active Substance: PRAVASTATIN
  8. ASPIRIN [Concomitant]
     Active Substance: ASPIRIN
     Dosage: LOW DOSE

REACTIONS (13)
  - Monoplegia [Unknown]
  - Cataract [Unknown]
  - Glaucoma [Unknown]
  - Ocular discomfort [Unknown]
  - Product prescribing error [Unknown]
  - Sciatica [Unknown]
  - Gait inability [Unknown]
  - Mobility decreased [Unknown]
  - Intervertebral disc protrusion [Unknown]
  - Spinal osteoarthritis [Unknown]
  - Lumbar radiculopathy [Unknown]
  - Sinus disorder [Unknown]
  - Cough [Not Recovered/Not Resolved]
